FAERS Safety Report 5086866-3 (Version None)
Quarter: 2006Q3

REPORT INFORMATION
  Report Type: 
  Country: None (occurrence: None)
  Receive Date: 20060818
  Receipt Date: 20060801
  Transmission Date: 20061208
  Serious: Yes (Other)
  Sender: FDA-Public Use
  Company Number: CHPA2006US07563

PATIENT
  Age: 65 Year
  Sex: Female
  Weight: 123.8 kg

DRUGS (4)
  1. NICOTINE [Suspect]
     Indication: SMOKING CESSATION THERAPY
     Dosage: 21 MG TRANSDERMAL
     Route: 062
  2. NICOTINE [Suspect]
     Indication: SMOKING CESSATION THERAPY
     Dosage: 14 MG QD TRANSDERMAL
     Route: 062
     Dates: start: 20060728
  3. ANTIDIABETICS (NO INGREDIENTS/SUBSTANCES) [Concomitant]
  4. ALL OTHER THERAPEUTIC PRODUCTS (NO INGREDIENTS/SUBSTANCES) [Concomitant]

REACTIONS (3)
  - ARTHRITIS INFECTIVE [None]
  - NICOTINE DEPENDENCE [None]
  - TREATMENT NONCOMPLIANCE [None]
